FAERS Safety Report 5017589-4 (Version None)
Quarter: 2006Q2

REPORT INFORMATION
  Report Type: 
  Country: None (occurrence: None)
  Receive Date: 20060601
  Receipt Date: 20060601
  Transmission Date: 20061013
  Serious: Yes (Disabling, Other)
  Sender: FDA-Public Use
  Company Number: None

PATIENT

DRUGS (1)
  1. FOSAMAX [Suspect]
     Dosage: 70 MG 1 A WEEK
     Dates: start: 20031107, end: 20041201

REACTIONS (3)
  - ARTHRALGIA [None]
  - DYSPEPSIA [None]
  - RENAL DISORDER [None]
